FAERS Safety Report 12053461 (Version 1)
Quarter: 2016Q1

REPORT INFORMATION
  Report Type: Report from Study
  Country: US (occurrence: US)
  Receive Date: 20160209
  Receipt Date: 20160209
  Transmission Date: 20160526
  Serious: No
  Sender: FDA-Public Use
  Company Number: US-ABBVIE-15P-163-1455370-00

PATIENT
  Age: 70 Year
  Sex: Female

DRUGS (2)
  1. HUMIRA [Suspect]
     Active Substance: ADALIMUMAB
     Indication: RHEUMATOID ARTHRITIS
     Route: 065
     Dates: start: 20150727
  2. METOPROLOL. [Concomitant]
     Active Substance: METOPROLOL
     Indication: PALPITATIONS
     Route: 048

REACTIONS (7)
  - Eczema [Unknown]
  - Depression [Unknown]
  - Increased appetite [Unknown]
  - Palpitations [Unknown]
  - Injection site pruritus [Recovered/Resolved]
  - Constipation [Unknown]
  - Vision blurred [Unknown]

NARRATIVE: CASE EVENT DATE: 20150727
